FAERS Safety Report 8774098 (Version 1)
Quarter: 2012Q4

REPORT INFORMATION
  Report Type: Report from Study
  Country: CA (occurrence: CA)
  Receive Date: 20120907
  Receipt Date: 20120907
  Transmission Date: 20130627
  Serious: Yes (Hospitalization)
  Sender: FDA-Public Use
  Company Number: CA-JNJFOC-20120813099

PATIENT
  Age: 30 None
  Sex: Female
  Weight: 93.5 kg

DRUGS (3)
  1. REMICADE [Suspect]
     Indication: CROHN^S DISEASE
     Route: 042
     Dates: start: 20090804
  2. BENADRYL [Concomitant]
     Indication: PREMEDICATION
     Route: 065
  3. HYDROCORTISONE [Concomitant]
     Indication: PREMEDICATION
     Route: 065

REACTIONS (3)
  - Gastrointestinal stoma complication [Unknown]
  - Appendix disorder [Unknown]
  - Hernia [Unknown]
